FAERS Safety Report 7912853 (Version 2)
Quarter: 2012Q4

REPORT INFORMATION
  Report Type: Report from Study
  Country: JP (occurrence: JP)
  Receive Date: 20110425
  Receipt Date: 20121001
  Transmission Date: 20130627
  Serious: Yes (Death, Life-Threatening)
  Sender: FDA-Public Use
  Company Number: JP-JNJFOC-20110408824

PATIENT
  Age: 59 None
  Sex: Male

DRUGS (15)
  1. TOPINA [Suspect]
     Indication: EPILEPSY
     Route: 048
     Dates: start: 20091124, end: 20100202
  2. TOPINA [Suspect]
     Indication: EPILEPSY
     Route: 048
     Dates: start: 20091117, end: 20091123
  3. DEPAKENE-R [Suspect]
     Indication: EPILEPSY
     Route: 048
     Dates: start: 20091115, end: 20091116
  4. ALEVIATIN [Concomitant]
     Indication: EPILEPSY
     Route: 048
     Dates: end: 20091102
  5. PHENOBARBITAL [Concomitant]
     Indication: EPILEPSY
     Route: 048
     Dates: end: 20091102
  6. LANDSEN [Concomitant]
     Indication: EPILEPSY
     Route: 048
     Dates: end: 20091102
  7. LUPIAL [Concomitant]
     Indication: EPILEPSY
     Route: 051
     Dates: end: 20091102
  8. CERCINE [Concomitant]
     Indication: EPILEPSY
     Route: 042
     Dates: start: 20091114, end: 20091114
  9. PHENOBAL [Concomitant]
     Indication: EPILEPSY
     Route: 042
     Dates: start: 20091114, end: 20091114
  10. WAKOBITAL [Concomitant]
     Indication: EPILEPSY
     Route: 051
     Dates: start: 20091115, end: 20091116
  11. DEPAKENE-R [Concomitant]
     Indication: EPILEPSY
     Route: 048
     Dates: start: 20091115, end: 20091116
  12. LEDERCORT D [Concomitant]
     Indication: EPILEPSY
     Route: 048
     Dates: start: 20091110, end: 20100208
  13. ALLEGRA [Concomitant]
     Indication: EPILEPSY
     Route: 048
     Dates: start: 20091110, end: 20100208
  14. BONALON [Concomitant]
     Indication: EPILEPSY
     Route: 048
     Dates: start: 20091110, end: 20100208
  15. BAKTAR [Concomitant]
     Indication: EPILEPSY
     Dosage: dose- 2DF
     Route: 048
     Dates: start: 20091110, end: 20100208

REACTIONS (3)
  - Sepsis [Fatal]
  - Infection susceptibility increased [Not Recovered/Not Resolved]
  - Decreased appetite [Not Recovered/Not Resolved]
